FAERS Safety Report 17289011 (Version 3)
Quarter: 2020Q1

REPORT INFORMATION
  Report Type: Spontaneous
  Country: JP (occurrence: JP)
  Receive Date: 20200120
  Receipt Date: 20200212
  Transmission Date: 20200409
  Serious: Yes (Other)
  Sender: FDA-Public Use
  Company Number: JP-KYOWAKIRIN-2020BKK000358

PATIENT

DRUGS (1)
  1. TOREMIFENE [Suspect]
     Active Substance: TOREMIFENE
     Indication: BREAST CANCER
     Dosage: 40 MG/DAY
     Route: 048

REACTIONS (2)
  - Macular telangiectasia [Recovering/Resolving]
  - Maculopathy [Recovering/Resolving]
